FAERS Safety Report 24887907 (Version 1)
Quarter: 2025Q1

REPORT INFORMATION
  Report Type: Spontaneous
  Country: JP (occurrence: JP)
  Receive Date: 20250127
  Receipt Date: 20250127
  Transmission Date: 20250409
  Serious: Yes (Death, Hospitalization, Other)
  Sender: MERCK
  Company Number: JP-MSD-M2023-38036

PATIENT
  Age: 80 Year
  Sex: Female

DRUGS (7)
  1. KEYTRUDA [Suspect]
     Active Substance: PEMBROLIZUMAB
     Indication: Uterine cancer
     Dosage: 200 MILLIGRAM, Q3W
     Route: 041
     Dates: start: 202306
  2. KEYTRUDA [Suspect]
     Active Substance: PEMBROLIZUMAB
     Dosage: 200 MILLIGRAM, Q3W
     Route: 041
     Dates: start: 20240229, end: 202408
  3. LENVATINIB MESYLATE [Suspect]
     Active Substance: LENVATINIB MESYLATE
     Indication: Uterine cancer
     Route: 048
     Dates: start: 202306
  4. LENVATINIB MESYLATE [Suspect]
     Active Substance: LENVATINIB MESYLATE
     Dosage: 20 MILLIGRAM, QD
     Route: 048
     Dates: start: 20240229, end: 20240319
  5. LENVATINIB MESYLATE [Suspect]
     Active Substance: LENVATINIB MESYLATE
     Route: 048
     Dates: start: 202405, end: 2024
  6. LENVATINIB MESYLATE [Suspect]
     Active Substance: LENVATINIB MESYLATE
     Route: 048
     Dates: start: 2024, end: 2024
  7. LENVATINIB MESYLATE [Suspect]
     Active Substance: LENVATINIB MESYLATE
     Dosage: 4 MILLIGRAM, QD
     Route: 048
     Dates: start: 2024, end: 2024

REACTIONS (9)
  - Immune-mediated hypothyroidism [Recovered/Resolved]
  - Immune-mediated hypothyroidism [Recovered/Resolved]
  - Malignant neoplasm progression [Fatal]
  - Hypertension [Recovered/Resolved]
  - Gingivitis [Unknown]
  - Malaise [Not Recovered/Not Resolved]
  - Hypertension [Recovered/Resolved]
  - Platelet count decreased [Recovering/Resolving]
  - Proteinuria [Recovering/Resolving]

NARRATIVE: CASE EVENT DATE: 20230101
